FAERS Safety Report 6007713-9 (Version None)
Quarter: 2008Q4

REPORT INFORMATION
  Report Type: 
  Country: None (occurrence: None)
  Receive Date: 20081217
  Receipt Date: 20080520
  Transmission Date: 20090506
  Serious: No
  Sender: FDA-Public Use
  Company Number: US-ASTRAZENECA-2008UW10325

PATIENT
  Age: 82 Year
  Sex: Female
  Weight: 52.2 kg

DRUGS (3)
  1. CRESTOR [Suspect]
     Indication: BLOOD CHOLESTEROL
     Dosage: TWO DOSES OF CRESTOR 5 MG
     Route: 048
     Dates: start: 20080501
  2. SYNTHROID [Concomitant]
  3. TYLENOL (CAPLET) [Concomitant]

REACTIONS (1)
  - CHEST PAIN [None]
